FAERS Safety Report 8862667 (Version 1)
Quarter: 2012Q4

REPORT INFORMATION
  Report Type: 
  Country: CH (occurrence: CH)
  Receive Date: 20121026
  Receipt Date: 20121026
  Transmission Date: 20130627
  Serious: Yes (Other)
  Sender: FDA-Public Use
  Company Number: CH-PFIZER INC-2012266719

PATIENT
  Age: 65 Year
  Sex: Female

DRUGS (14)
  1. AMIODARONE HCL [Suspect]
     Indication: ATRIAL FIBRILLATION
     Dosage: UNK
     Route: 048
     Dates: start: 20120718, end: 20120724
  2. AMIODARONE HCL [Interacting]
     Indication: ATRIAL FLUTTER
  3. MORPHINE [Suspect]
     Indication: ABDOMINAL PAIN
     Dosage: 10 mg, every 4 hrs
     Route: 048
     Dates: start: 20120717, end: 20120718
  4. MORPHINE [Suspect]
     Dosage: 0.5 mg/hr
     Route: 042
     Dates: start: 20120721
  5. MIDAZOLAM [Interacting]
     Indication: ABDOMINAL PAIN
     Dosage: UNK
     Route: 042
     Dates: start: 20120720, end: 20120725
  6. FENTANYL [Interacting]
     Indication: ABDOMINAL PAIN
     Dosage: 275 ug, UNK
     Route: 042
     Dates: start: 20120717, end: 20120717
  7. FENTANYL [Interacting]
     Dosage: 75 ug, UNK
     Dates: start: 20120718, end: 20120718
  8. CLARITHROMYCIN [Interacting]
     Indication: PRODUCT USED FOR UNKNOWN INDICATION
     Dosage: UNK
     Route: 065
     Dates: end: 20120717
  9. ESCITALOPRAM [Concomitant]
     Dosage: 10 mg, 1x/day
  10. TAZOBAC [Concomitant]
     Indication: PSEUDOMONAS INFECTION
     Dosage: 4.5 g, 3x/day
     Dates: start: 20120717, end: 20120731
  11. ZYPREXA [Concomitant]
     Dosage: 5 mg, daily
     Dates: start: 20120725
  12. SPIRIVA [Concomitant]
     Dosage: 18 ug, 1x/day
  13. DOSPIR [Concomitant]
     Dosage: 1 DF, 4x/day
  14. PREDNISONE [Concomitant]
     Dosage: 40 mg, 1x/day
     Dates: start: 20120314

REACTIONS (3)
  - Drug interaction [Unknown]
  - Respiratory distress [Recovered/Resolved]
  - Coma [Unknown]
